FAERS Safety Report 21931747 (Version 2)
Quarter: 2023Q1

REPORT INFORMATION
  Report Type: Spontaneous
  Country: US (occurrence: None)
  Receive Date: 20230131
  Receipt Date: 20230302
  Transmission Date: 20230417
  Serious: Yes (Other)
  Sender: FDA-Public Use
  Company Number: US-Hikma Pharmaceuticals USA Inc.-US-H14001-23-00218

PATIENT
  Sex: Male
  Weight: 103.87 kg

DRUGS (4)
  1. INFUMORPH [Suspect]
     Active Substance: MORPHINE SULFATE
     Indication: Spinal pain
     Route: 037
  2. INFUMORPH [Suspect]
     Active Substance: MORPHINE SULFATE
     Route: 037
  3. BUPIVACAINE [Suspect]
     Active Substance: BUPIVACAINE
     Indication: Product used for unknown indication
     Route: 065
  4. BACLOFEN [Suspect]
     Active Substance: BACLOFEN
     Indication: Product used for unknown indication
     Route: 065

REACTIONS (3)
  - Pain [Unknown]
  - Withdrawal syndrome [Unknown]
  - Accidental underdose [Recovered/Resolved]
